FAERS Safety Report 8550749-4 (Version None)
Quarter: 2012Q3

REPORT INFORMATION
  Report Type: 
  Country: None (occurrence: None)
  Receive Date: 20120730
  Receipt Date: 20110707
  Transmission Date: 20120928
  Serious: No
  Sender: FDA-Public Use
  Company Number: US-ALLERGAN-1109187US

PATIENT
  Age: 71 Year
  Sex: Female

DRUGS (1)
  1. LUMIGAN [Suspect]
     Indication: INTRAOCULAR PRESSURE INCREASED
     Dosage: 2 GTT, SINGLE
     Route: 047
     Dates: start: 20110705, end: 20110705

REACTIONS (7)
  - BURNING SENSATION [None]
  - NASAL DISCOMFORT [None]
  - EYELID OEDEMA [None]
  - THROAT IRRITATION [None]
  - EYE IRRITATION [None]
  - OCULAR HYPERAEMIA [None]
  - EYE PRURITUS [None]
